APPROVED DRUG PRODUCT: FLUPHENAZINE HYDROCHLORIDE
Active Ingredient: FLUPHENAZINE HYDROCHLORIDE
Strength: 10MG
Dosage Form/Route: TABLET;ORAL
Application: A088550 | Product #001
Applicant: WATSON LABORATORIES INC
Approved: Dec 18, 1987 | RLD: No | RS: No | Type: DISCN